FAERS Safety Report 8760570 (Version 2)
Quarter: 2012Q4

REPORT INFORMATION
  Report Type: Spontaneous
  Country: US (occurrence: None)
  Receive Date: 20120822
  Receipt Date: 20120831
  Transmission Date: 20130627
  Serious: Yes (Other)
  Sender: FDA-Public Use
  Company Number: USA/USA/12/0025472

PATIENT
  Age: 66 Year
  Sex: Female

DRUGS (3)
  1. RANITIDINE [Suspect]
     Indication: DRUG USE FOR UNKNOWN INDICATION
     Dosage: 2 in 1 d
     Route: 048
     Dates: start: 2012
  2. METOPROLOL [Concomitant]
  3. ESTRADIOL [Concomitant]

REACTIONS (1)
  - Amnesia [None]
